FAERS Safety Report 6542907-5 (Version None)
Quarter: 2010Q1

REPORT INFORMATION
  Report Type: 
  Country: None (occurrence: None)
  Receive Date: 20100120
  Receipt Date: 20100111
  Transmission Date: 20100710
  Serious: Yes (Hospitalization)
  Sender: FDA-Public Use
  Company Number: FR-ELI_LILLY_AND_COMPANY-FR201001001468

PATIENT
  Sex: Male

DRUGS (13)
  1. ALIMTA [Suspect]
     Indication: LUNG ADENOCARCINOMA
     Dosage: 560 MG, UNKNOWN
     Route: 042
     Dates: start: 20091105
  2. TARCEVA [Concomitant]
     Indication: LUNG ADENOCARCINOMA
     Dosage: 100 MG, DAILY (1/D)
     Route: 048
     Dates: start: 20090701
  3. FRAXODI [Concomitant]
     Indication: VENA CAVA THROMBOSIS
     Dosage: 0.3 ML, DAILY (1/D)
     Route: 058
     Dates: start: 20091105, end: 20091116
  4. SOLUPRED [Concomitant]
     Indication: PROPHYLAXIS
     Dosage: 60 MG, UNKNOWN
     Route: 065
     Dates: start: 20091105
  5. FOLIC ACID [Concomitant]
     Indication: VITAMIN SUPPLEMENTATION
     Dosage: 0.4 MG, DAILY (1/D)
     Route: 065
     Dates: start: 20091105
  6. PRIMPERAN /00041901/ [Concomitant]
     Indication: PREMEDICATION
     Dosage: UNK, UNKNOWN
     Route: 065
     Dates: start: 20091105
  7. NEULASTA [Concomitant]
     Indication: PREMEDICATION
     Dosage: UNK, UNKNOWN
     Route: 065
     Dates: start: 20091105
  8. DILTIAZEM [Concomitant]
     Dosage: UNK, DAILY (1/D)
     Route: 065
  9. NOVONORM [Concomitant]
     Dosage: 3 MG, DAILY (1/D)
     Route: 065
  10. NOVOMIX30 [Concomitant]
     Dosage: 30 U, DAILY (1/D)
     Route: 065
  11. PRAVASTATIN [Concomitant]
     Dosage: 40 MG, DAILY (1/D)
     Route: 065
  12. FORTZAAR [Concomitant]
     Dosage: 100MG25MG, DAILY (1/D)
     Route: 065
  13. DOXYCYCLINE [Concomitant]
     Indication: ACNE
     Dosage: UNK, DAILY (1/D)
     Route: 065

REACTIONS (3)
  - ABDOMINAL PAIN UPPER [None]
  - HAEMOPTYSIS [None]
  - THROMBOCYTOPENIA [None]
